FAERS Safety Report 25443174 (Version 1)
Quarter: 2025Q2

REPORT INFORMATION
  Report Type: Spontaneous
  Country: ES (occurrence: ES)
  Receive Date: 20250617
  Receipt Date: 20250617
  Transmission Date: 20250717
  Serious: Yes (Death, Other)
  Sender: AUROBINDO
  Company Number: ES-AEMPS-1688513

PATIENT
  Age: 81 Year
  Sex: Male

DRUGS (1)
  1. AMOXICILLIN\CLAVULANIC ACID [Suspect]
     Active Substance: AMOXICILLIN\CLAVULANIC ACID
     Indication: Tooth infection
     Route: 048
     Dates: start: 20250521

REACTIONS (3)
  - Anaphylactic shock [Fatal]
  - Cardio-respiratory arrest [Fatal]
  - Product prescribing error [Fatal]

NARRATIVE: CASE EVENT DATE: 20250521
